FAERS Safety Report 20305086 (Version 2)
Quarter: 2022Q1

REPORT INFORMATION
  Report Type: Other
  Country: KR (occurrence: None)
  Receive Date: 20220106
  Receipt Date: 20220113
  Transmission Date: 20220423
  Serious: Yes (Other)
  Sender: FDA-Public Use
  Company Number: KR-ROCHE-2995357

PATIENT

DRUGS (4)
  1. PEGINTERFERON ALFA-2A [Suspect]
     Active Substance: PEGINTERFERON ALFA-2A
     Indication: Chronic hepatitis B
     Route: 058
  2. ENTECAVIR [Suspect]
     Active Substance: ENTECAVIR
     Indication: Chronic hepatitis B
     Route: 048
  3. HEPATITIS B VIRUS HBSAG SURFACE PROTEIN ANTIGEN [Suspect]
     Active Substance: HEPATITIS B VIRUS HBSAG SURFACE PROTEIN ANTIGEN
     Indication: Chronic hepatitis B
     Dosage: 20 MICROGRAM HBSAG 4 TIMES (AT WEEKS 52, 56, 60, AND 76)
     Route: 030
  4. HEPATITIS B VIRUS HBSAG SURFACE PROTEIN ANTIGEN [Suspect]
     Active Substance: HEPATITIS B VIRUS HBSAG SURFACE PROTEIN ANTIGEN
     Dosage: 20 MICROGRAM HBSAG 4 TIMES (AT WEEKS 4, 8, 12, AND 28)
     Route: 030

REACTIONS (4)
  - Neutropenia [Unknown]
  - Pancytopenia [Unknown]
  - Hepatocellular carcinoma [Unknown]
  - Cytopenia [Unknown]
